FAERS Safety Report 13977120 (Version 4)
Quarter: 2018Q2

REPORT INFORMATION
  Report Type: Spontaneous
  Country: JP (occurrence: JP)
  Receive Date: 20170914
  Receipt Date: 20180428
  Transmission Date: 20180711
  Serious: Yes (Other)
  Sender: FDA-Public Use
  Company Number: JP-009507513-1709JPN000608J

PATIENT
  Sex: Male
  Weight: 106 kg

DRUGS (9)
  1. BRIDION [Suspect]
     Active Substance: SUGAMMADEX
     Dosage: 400 MG, QD
     Route: 042
     Dates: start: 20170531, end: 20170531
  2. TAKECAB [Concomitant]
     Active Substance: VONOPRAZAN FUMURATE
     Dosage: UNK
     Route: 048
  3. ISODINE [Concomitant]
     Active Substance: POVIDONE-IODINE
     Indication: PROPHYLAXIS
     Dosage: UNK
     Route: 061
     Dates: start: 20170531, end: 20170531
  4. CANDESARTAN. [Concomitant]
     Active Substance: CANDESARTAN
     Dosage: UNK
     Route: 048
  5. CALONAL [Concomitant]
     Active Substance: ACETAMINOPHEN
     Dosage: UNK
     Route: 048
  6. UROCALUN [Concomitant]
     Active Substance: QUERCUS SALICINA STEM
     Dosage: UNK
     Route: 048
  7. ESLAX INTRAVENOUS 50MG/5.0ML [Suspect]
     Active Substance: ROCURONIUM BROMIDE
     Dosage: UNK
     Route: 051
     Dates: start: 20170531, end: 20170531
  8. BRIDION [Suspect]
     Active Substance: SUGAMMADEX
     Indication: NEUROMUSCULAR BLOCKADE REVERSAL
     Dosage: UNK
     Route: 042
     Dates: start: 20150807, end: 20150807
  9. NICORANDIL [Concomitant]
     Active Substance: NICORANDIL
     Dosage: UNK
     Route: 041

REACTIONS (2)
  - Kounis syndrome [Unknown]
  - Anaphylactic shock [Unknown]
